FAERS Safety Report 5872817-8 (Version None)
Quarter: 2008Q3

REPORT INFORMATION
  Report Type: 
  Country: None (occurrence: None)
  Receive Date: 20080905
  Receipt Date: 20080828
  Transmission Date: 20090109
  Serious: Yes (Hospitalization)
  Sender: FDA-Public Use
  Company Number: JP-ABBOTT-08P-087-0460988-00

PATIENT
  Sex: Male

DRUGS (15)
  1. CLARITHROMYCIN [Suspect]
     Indication: HELICOBACTER INFECTION
     Dosage: 0.5 CARD TWICE DAILY
     Route: 048
     Dates: start: 20080104, end: 20080108
  2. CLARITHROMYCIN [Suspect]
     Dosage: 0.5 CARD TWICE DAILY
     Route: 048
     Dates: start: 20080110, end: 20080111
  3. LANSOPRAZOLE [Interacting]
     Indication: HELICOBACTER INFECTION
     Dosage: 0.5 CARD TWICE DAILY
     Route: 048
     Dates: start: 20080104, end: 20080108
  4. LANSOPRAZOLE [Interacting]
     Indication: GASTRIC ULCER
     Route: 048
     Dates: start: 20071101
  5. LANSOPRAZOLE [Interacting]
     Dosage: 0.5 CARD TWICE DAILY
     Route: 048
     Dates: start: 20080110, end: 20080111
  6. AMOXICILLIN [Suspect]
     Indication: HELICOBACTER INFECTION
     Dosage: 0.5 CARD TWICE DAILY
     Route: 048
     Dates: start: 20080104, end: 20080108
  7. AMOXICILLIN [Suspect]
     Dosage: 0.5 CARD TWICE DAILY
     Route: 048
     Dates: start: 20080110, end: 20080111
  8. GLIBENCLAMIDE [Interacting]
     Indication: DIABETES MELLITUS
     Route: 048
  9. TEPRENONE [Concomitant]
     Indication: DRUG USE FOR UNKNOWN INDICATION
     Route: 048
     Dates: start: 20071116
  10. MADOPAR [Concomitant]
     Indication: PARKINSON'S DISEASE
     Route: 048
  11. BROMAZEPAM [Concomitant]
     Indication: PARKINSON'S DISEASE
     Route: 048
  12. AMANTADINE HCL [Concomitant]
     Indication: PARKINSON'S DISEASE
     Route: 048
  13. BROTIZOLAM [Concomitant]
     Indication: INSOMNIA
     Route: 048
  14. GLICLAZIDE [Concomitant]
     Indication: TYPE 2 DIABETES MELLITUS
     Route: 048
     Dates: start: 20080109
  15. TIZANIDINE HYDROCHLORIDE [Concomitant]
     Indication: PARKINSON'S DISEASE
     Route: 048

REACTIONS (3)
  - ALTERED STATE OF CONSCIOUSNESS [None]
  - DRUG INTERACTION [None]
  - HYPOGLYCAEMIA [None]
